FAERS Safety Report 15019217 (Version 1)
Quarter: 2018Q2

REPORT INFORMATION
  Report Type: Spontaneous
  Country: US (occurrence: US)
  Receive Date: 20180524
  Receipt Date: 20180524
  Transmission Date: 20180711
  Serious: Yes (Hospitalization)
  Sender: FDA-Public Use
  Company Number: None

PATIENT
  Age: 70 Year
  Sex: Male
  Weight: 96 kg

DRUGS (2)
  1. CEFAZOLIN [Suspect]
     Active Substance: CEFAZOLIN
     Indication: SURGERY
     Route: 042
     Dates: start: 20180313, end: 20180313
  2. CEPHALEXIN. [Suspect]
     Active Substance: CEPHALEXIN
     Indication: SURGERY
     Route: 048
     Dates: start: 20180313, end: 20180315

REACTIONS (4)
  - Pruritus [None]
  - Throat irritation [None]
  - Chest pain [None]
  - Anaphylactic reaction [None]

NARRATIVE: CASE EVENT DATE: 20180315
